FAERS Safety Report 15486015 (Version 1)
Quarter: 2018Q4

REPORT INFORMATION
  Report Type: Report from Study
  Country: BR (occurrence: BR)
  Receive Date: 20181011
  Receipt Date: 20181011
  Transmission Date: 20190205
  Serious: Yes (Hospitalization)
  Sender: FDA-Public Use
  Company Number: PHHY2018BR006727

PATIENT
  Sex: Male
  Weight: 86 kg

DRUGS (1)
  1. EXJADE [Suspect]
     Active Substance: DEFERASIROX
     Indication: IRON OVERLOAD
     Dosage: 1 DF, QD
     Route: 048
     Dates: start: 2017

REACTIONS (9)
  - Platelet count decreased [Unknown]
  - Serum ferritin decreased [Not Recovered/Not Resolved]
  - Pruritus [Unknown]
  - Insomnia [Unknown]
  - Decreased appetite [Unknown]
  - Gastrointestinal disorder [Recovered/Resolved]
  - Weight decreased [Unknown]
  - Diarrhoea [Unknown]
  - Cardiac disorder [Recovered/Resolved]
